FAERS Safety Report 10588354 (Version 1)
Quarter: 2014Q4

REPORT INFORMATION
  Report Type: Spontaneous
  Country: US (occurrence: US)
  Receive Date: 20141117
  Receipt Date: 20141117
  Transmission Date: 20150529
  Serious: No
  Sender: FDA-Public Use
  Company Number: US-ENDO PHARMACEUTICALS INC.-PEVK20140002

PATIENT
  Age: 51 Year
  Sex: Female

DRUGS (3)
  1. BENADRYL [Concomitant]
     Active Substance: DIPHENHYDRAMINE HYDROCHLORIDE
  2. HYDROCODONE [Concomitant]
     Active Substance: HYDROCODONE
  3. PENICILLIN V POTASSIUM TABLETS 500 MG [Suspect]
     Active Substance: PENICILLIN V POTASSIUM
     Indication: TOOTH ABSCESS
     Dates: start: 20140804

REACTIONS (1)
  - Pruritus [Recovered/Resolved]

NARRATIVE: CASE EVENT DATE: 20140805
